FAERS Safety Report 10171008 (Version 1)
Quarter: 2014Q2

REPORT INFORMATION
  Report Type: Spontaneous
  Country: GB (occurrence: GB)
  Receive Date: 20140514
  Receipt Date: 20140514
  Transmission Date: 20141212
  Serious: Yes (Other)
  Sender: FDA-Public Use
  Company Number: GB-ASTELLAS-2014EU005014

PATIENT
  Sex: Male

DRUGS (2)
  1. XTANDI [Suspect]
     Indication: PROSTATE CANCER METASTATIC
     Route: 048
     Dates: start: 20130902
  2. TRIPTORELIN [Concomitant]
     Indication: HORMONE LEVEL ABNORMAL
     Dosage: 11.25 MG, EVERY 3 MONTHS
     Route: 030

REACTIONS (1)
  - Cardiac failure [Not Recovered/Not Resolved]
